FAERS Safety Report 18607052 (Version 5)
Quarter: 2025Q1

REPORT INFORMATION
  Report Type: Report from Study
  Country: CA (occurrence: CA)
  Receive Date: 20201211
  Receipt Date: 20250129
  Transmission Date: 20250409
  Serious: No
  Sender: TAKEDA
  Company Number: CA-TAKEDA-2020TUS056779

PATIENT
  Sex: Male

DRUGS (15)
  1. VEDOLIZUMAB [Suspect]
     Active Substance: VEDOLIZUMAB
     Indication: Colitis ulcerative
  2. VEDOLIZUMAB [Suspect]
     Active Substance: VEDOLIZUMAB
  3. VEDOLIZUMAB [Suspect]
     Active Substance: VEDOLIZUMAB
  4. VEDOLIZUMAB [Suspect]
     Active Substance: VEDOLIZUMAB
  5. VEDOLIZUMAB [Suspect]
     Active Substance: VEDOLIZUMAB
  6. LIPITOR [Concomitant]
     Active Substance: ATORVASTATIN CALCIUM
  7. XARELTO [Concomitant]
     Active Substance: RIVAROXABAN
  8. BISOPROLOL [Concomitant]
     Active Substance: BISOPROLOL
  9. PERINDOPRIL [Concomitant]
     Active Substance: PERINDOPRIL
  10. METHOTREXATE [Concomitant]
     Active Substance: METHOTREXATE
  11. ALLOPURINOL [Concomitant]
     Active Substance: ALLOPURINOL
  12. VITAMIN D [Concomitant]
     Active Substance: VITAMIN D NOS
  13. FOLIC ACID [Concomitant]
     Active Substance: FOLIC ACID
  14. MAGNESIUM [Concomitant]
     Active Substance: MAGNESIUM
  15. B12 [Concomitant]

REACTIONS (3)
  - Stress [Unknown]
  - Heart rate increased [Unknown]
  - Blood pressure increased [Unknown]
